FAERS Safety Report 8817145 (Version 1)
Quarter: 2012Q4

REPORT INFORMATION
  Report Type: Spontaneous
  Country: US (occurrence: None)
  Receive Date: 20121003
  Receipt Date: 20121003
  Transmission Date: 20130627
  Serious: Yes (Life-Threatening, Hospitalization)
  Sender: FDA-Public Use
  Company Number: None

PATIENT
  Age: 78 Year
  Sex: Female
  Weight: 93.9 kg

DRUGS (2)
  1. CARBAMAZEPINE [Suspect]
     Indication: NECK PAIN
     Dosage: 1 pill 3x dly
     Dates: start: 201207, end: 201208
  2. CARBAMAZEPINE [Suspect]
     Indication: BRAIN DISORDER NOS
     Dosage: 1 pill 3x dly
     Dates: start: 201207, end: 201208

REACTIONS (8)
  - Cardiac disorder [None]
  - Abasia [None]
  - Cerebrovascular accident [None]
  - Tremor [None]
  - Blood pressure fluctuation [None]
  - Respiratory disorder [None]
  - Gastric disorder [None]
  - Inappropriate schedule of drug administration [None]
